FAERS Safety Report 17272368 (Version 1)
Quarter: 2020Q1

REPORT INFORMATION
  Report Type: Spontaneous
  Country: US (occurrence: US)
  Receive Date: 20200114
  Receipt Date: 20200114
  Transmission Date: 20200409
  Serious: No
  Sender: FDA-Public Use
  Company Number: None

PATIENT
  Age: 39 Year
  Sex: Female
  Weight: 89.1 kg

DRUGS (1)
  1. NP THYROID [Suspect]
     Active Substance: LEVOTHYROXINE\LIOTHYRONINE
     Indication: AUTOIMMUNE THYROIDITIS
     Dosage: ?          OTHER STRENGTH:GRAIN;QUANTITY:60 TABLET(S);?
     Route: 048
     Dates: start: 20190809

REACTIONS (2)
  - Taste disorder [None]
  - Parosmia [None]

NARRATIVE: CASE EVENT DATE: 20190809
